FAERS Safety Report 24297797 (Version 1)
Quarter: 2024Q3

REPORT INFORMATION
  Report Type: Spontaneous
  Country: US (occurrence: US)
  Receive Date: 20240909
  Receipt Date: 20240909
  Transmission Date: 20241017
  Serious: Yes (Other)
  Sender: SANOFI AVENTIS
  Company Number: US-SA-2024SA258848

PATIENT
  Age: 63 Year
  Sex: Male
  Weight: 87.27 kg

DRUGS (2)
  1. DUPIXENT [Suspect]
     Active Substance: DUPILUMAB
     Indication: Eosinophilic oesophagitis
     Dosage: 300 MG, QW
     Route: 058
  2. HUMIRA [Concomitant]
     Active Substance: ADALIMUMAB
     Dosage: UNK

REACTIONS (4)
  - Neoplasm malignant [Unknown]
  - Cataract [Unknown]
  - Spinal operation [Unknown]
  - Toe operation [Unknown]

NARRATIVE: CASE EVENT DATE: 20230101
